FAERS Safety Report 4946490-7 (Version None)
Quarter: 2006Q1

REPORT INFORMATION
  Report Type: 
  Country: None (occurrence: None)
  Receive Date: 20060313
  Receipt Date: 20060302
  Transmission Date: 20060701
  Serious: Yes (Death)
  Sender: FDA-Public Use
  Company Number: MEDI-0004238

PATIENT
  Age: 5 Month
  Sex: Female
  Weight: 4.69 kg

DRUGS (1)
  1. SYNAGIS [Suspect]
     Indication: ANTIVIRAL PROPHYLAXIS
     Dosage: 70 MG, 1 IN 30 D, INTRAMUSCULAR
     Route: 030
     Dates: start: 20051012, end: 20060124

REACTIONS (1)
  - CYANOSIS [None]
